FAERS Safety Report 6292630-X (Version None)
Quarter: 2009Q3

REPORT INFORMATION
  Report Type: 
  Country: None (occurrence: None)
  Receive Date: 20090731
  Receipt Date: 20090721
  Transmission Date: 20100115
  Serious: Yes (Other)
  Sender: FDA-Public Use
  Company Number: US-PFIZER INC-2009233088

PATIENT

DRUGS (1)
  1. DEPO-PROVERA [Suspect]
     Dosage: UNIT DOSE: UNKNOWN;

REACTIONS (1)
  - MUSCLE HAEMORRHAGE [None]
